FAERS Safety Report 7349108-1 (Version None)
Quarter: 2011Q1

REPORT INFORMATION
  Report Type: 
  Country: None (occurrence: None)
  Receive Date: 20110314
  Receipt Date: 20110303
  Transmission Date: 20110831
  Serious: Yes (Hospitalization, Other)
  Sender: FDA-Public Use
  Company Number: US-ROCHE-701304

PATIENT
  Sex: Female
  Weight: 54.4 kg

DRUGS (3)
  1. LEVOXYL [Concomitant]
     Indication: HYPOTHYROIDISM
  2. MINOCYCLINE HCL [Concomitant]
     Indication: ACNE
  3. ACCUTANE [Suspect]
     Indication: ACNE
     Route: 065
     Dates: start: 20001028, end: 20010317

REACTIONS (15)
  - SMALL INTESTINAL OBSTRUCTION [None]
  - PHARYNGITIS [None]
  - FRACTURE [None]
  - DRUG HYPERSENSITIVITY [None]
  - PLEURITIC PAIN [None]
  - GASTROINTESTINAL INJURY [None]
  - WEIGHT DECREASED [None]
  - COLITIS ULCERATIVE [None]
  - EMOTIONAL DISTRESS [None]
  - CONJUNCTIVITIS [None]
  - PULMONARY EMBOLISM [None]
  - HEPATIC ENZYME INCREASED [None]
  - INFLAMMATORY BOWEL DISEASE [None]
  - ORAL HERPES [None]
  - WEIGHT INCREASED [None]
